FAERS Safety Report 10283336 (Version 1)
Quarter: 2014Q3

REPORT INFORMATION
  Report Type: Spontaneous
  Country: US (occurrence: None)
  Receive Date: 20140702
  Receipt Date: 20140702
  Transmission Date: 20150326
  Serious: Yes (Other)
  Sender: FDA-Public Use
  Company Number: 2413257

PATIENT
  Sex: Female

DRUGS (1)
  1. PROPOFOL. [Suspect]
     Active Substance: PROPOFOL
     Indication: MEDICAL DEVICE REMOVAL
     Dosage: INJECTION
     Dates: start: 20140416

REACTIONS (7)
  - Pain [None]
  - Rash macular [None]
  - Furuncle [None]
  - Movement disorder [None]
  - Abscess limb [None]
  - Procedural vomiting [None]
  - Swelling [None]

NARRATIVE: CASE EVENT DATE: 20140416
